FAERS Safety Report 23433331 (Version 1)
Quarter: 2024Q1

REPORT INFORMATION
  Report Type: Spontaneous
  Country: US (occurrence: US)
  Receive Date: 20240123
  Receipt Date: 20240123
  Transmission Date: 20240410
  Serious: Yes (Other)
  Sender: FDA-Public Use
  Company Number: US-PFIZER INC-202400018335

PATIENT
  Age: 59 Year
  Sex: Female

DRUGS (16)
  1. XELJANZ XR [Suspect]
     Active Substance: TOFACITINIB CITRATE
     Dosage: 11 MG, DAILY
     Route: 048
     Dates: start: 2023, end: 2023
  2. METHOCARBAMOL [Concomitant]
     Active Substance: METHOCARBAMOL
     Dosage: UNK
  3. GABAPENTIN [Concomitant]
     Active Substance: GABAPENTIN
     Dosage: UNK
  4. OXYCODONE [Concomitant]
     Active Substance: OXYCODONE
     Dosage: UNK
  5. BUPROPION [Concomitant]
     Active Substance: BUPROPION
     Dosage: UNK
  6. ONDANSETRON [Concomitant]
     Active Substance: ONDANSETRON
     Dosage: UNK
  7. DOXYCYCLINE [Concomitant]
     Active Substance: DOXYCYCLINE
     Dosage: UNK
  8. MOUNJARO [Concomitant]
     Active Substance: TIRZEPATIDE
     Dosage: UNK
  9. OZEMPIC [Concomitant]
     Active Substance: SEMAGLUTIDE
     Dosage: UNK
  10. VICTOZA [Concomitant]
     Active Substance: LIRAGLUTIDE
     Dosage: UNK
  11. WEGOVY [Concomitant]
     Active Substance: SEMAGLUTIDE
     Dosage: UNK
  12. ESCITALOPRAM [Concomitant]
     Active Substance: ESCITALOPRAM OXALATE
     Dosage: UNK
  13. PRILOSEC [Concomitant]
     Active Substance: OMEPRAZOLE MAGNESIUM
     Dosage: UNK
  14. PREDNISONE [Concomitant]
     Active Substance: PREDNISONE
     Dosage: UNK
  15. BENZONATATE [Concomitant]
     Active Substance: BENZONATATE
     Dosage: UNK
  16. AZITHROMYCIN [Concomitant]
     Active Substance: AZITHROMYCIN
     Dosage: UNK

REACTIONS (4)
  - Pneumonia [Recovered/Resolved]
  - Bronchitis [Recovered/Resolved]
  - Ear infection [Recovered/Resolved]
  - Sinus disorder [Recovered/Resolved]

NARRATIVE: CASE EVENT DATE: 20231001
